FAERS Safety Report 4690561-X (Version None)
Quarter: 2005Q2

REPORT INFORMATION
  Report Type: 
  Country: None (occurrence: None)
  Receive Date: 20050614
  Receipt Date: 20050614
  Transmission Date: 20051028
  Serious: Yes (Other)
  Sender: FDA-Public Use
  Company Number: None

PATIENT
  Sex: Female
  Weight: 118.8424 kg

DRUGS (1)
  1. ARTICAINE    4% [Suspect]
     Dosage: INJECTED  BUCCAL
     Route: 002

REACTIONS (2)
  - DRUG EFFECT PROLONGED [None]
  - HYPOAESTHESIA [None]
